FAERS Safety Report 4463246-2 (Version None)
Quarter: 2004Q3

REPORT INFORMATION
  Report Type: 
  Country: None (occurrence: None)
  Receive Date: 20040930
  Receipt Date: 20040908
  Transmission Date: 20050211
  Serious: Yes (Other)
  Sender: FDA-Public Use
  Company Number: AU-GLAXOSMITHKLINE-B0344739A

PATIENT
  Age: 40 Year
  Sex: Male

DRUGS (7)
  1. LAMIVUDINE [Suspect]
     Indication: HIV INFECTION
     Route: 065
  2. ZIDOVUDINE [Suspect]
     Indication: HIV INFECTION
     Route: 065
  3. COMBIVIR [Suspect]
     Indication: HIV INFECTION
     Route: 065
  4. DIDANOSINE [Suspect]
     Indication: HIV INFECTION
     Route: 065
  5. NELFINAVIR [Suspect]
     Indication: HIV INFECTION
     Route: 065
  6. STAVUDINE [Suspect]
     Indication: HIV INFECTION
     Route: 065
  7. NEVIRAPINE [Suspect]
     Indication: HIV INFECTION
     Route: 065

REACTIONS (7)
  - ALANINE AMINOTRANSFERASE INCREASED [None]
  - ASPARTATE AMINOTRANSFERASE INCREASED [None]
  - BLOOD HIV RNA DECREASED [None]
  - DRUG INEFFECTIVE [None]
  - HEPATIC FIBROSIS [None]
  - HEPATITIS [None]
  - HEPATITIS B [None]
